FAERS Safety Report 16126137 (Version 1)
Quarter: 2019Q1

REPORT INFORMATION
  Report Type: Spontaneous
  Country: FR (occurrence: FR)
  Receive Date: 20190328
  Receipt Date: 20190328
  Transmission Date: 20190418
  Serious: Yes (Hospitalization)
  Sender: FDA-Public Use
  Company Number: FR-ROCHE-2285805

PATIENT
  Age: 76 Year
  Sex: Female
  Weight: 64 kg

DRUGS (10)
  1. XAGRID [Suspect]
     Active Substance: ANAGRELIDE HYDROCHLORIDE
     Indication: ESSENTIAL THROMBOCYTHAEMIA
     Route: 048
     Dates: start: 2009, end: 201902
  2. KARDEGIC [Concomitant]
     Active Substance: ASPIRIN DL-LYSINE
     Route: 065
     Dates: start: 2008
  3. NEBIVOLOL. [Concomitant]
     Active Substance: NEBIVOLOL
     Route: 065
     Dates: start: 2008
  4. IRBESARTAN. [Concomitant]
     Active Substance: IRBESARTAN
     Route: 065
     Dates: start: 2008
  5. CALCIPARINE [Concomitant]
     Active Substance: HEPARIN CALCIUM
     Route: 065
     Dates: start: 2008
  6. AMLODIPINE [Concomitant]
     Active Substance: AMLODIPINE BESYLATE
     Route: 065
  7. RILMENIDINE [Concomitant]
     Active Substance: RILMENIDINE
     Route: 065
     Dates: start: 2008
  8. RAMIPRIL. [Concomitant]
     Active Substance: RAMIPRIL
     Route: 065
     Dates: start: 2008
  9. ERIVEDGE [Suspect]
     Active Substance: VISMODEGIB
     Indication: BASAL CELL CARCINOMA
     Route: 048
     Dates: start: 20181127, end: 201902
  10. KAYEXALATE [Concomitant]
     Active Substance: SODIUM POLYSTYRENE SULFONATE
     Route: 065
     Dates: start: 2008

REACTIONS (2)
  - Pulmonary arterial hypertension [Not Recovered/Not Resolved]
  - Dyspnoea [Not Recovered/Not Resolved]

NARRATIVE: CASE EVENT DATE: 20190125
